FAERS Safety Report 20153029 (Version 1)
Quarter: 2021Q4

REPORT INFORMATION
  Report Type: Report from Study
  Country: US (occurrence: US)
  Receive Date: 20211206
  Receipt Date: 20211206
  Transmission Date: 20220304
  Serious: Yes (Other)
  Sender: FDA-Public Use
  Company Number: US-BAYER-2021A260985

PATIENT
  Age: 69 Year
  Sex: Male

DRUGS (1)
  1. XOFIGO [Suspect]
     Active Substance: RADIUM RA-223 DICHLORIDE
     Indication: Hormone-refractory prostate cancer
     Dosage: 96.70 ?CI, Q4WK
     Route: 042
     Dates: start: 20210914, end: 20210914

REACTIONS (1)
  - Full blood count abnormal [Unknown]
